FAERS Safety Report 17944078 (Version 8)
Quarter: 2022Q1

REPORT INFORMATION
  Report Type: Spontaneous
  Country: CA (occurrence: CA)
  Receive Date: 20200625
  Receipt Date: 20220104
  Transmission Date: 20220423
  Serious: Yes (Hospitalization, Other)
  Sender: FDA-Public Use
  Company Number: None

PATIENT
  Age: 41 Year
  Sex: Female

DRUGS (8)
  1. CLONAZEPAM [Interacting]
     Active Substance: CLONAZEPAM
     Indication: Insomnia
     Dosage: 1 EVERY 1 DAYS
     Route: 048
  2. ARIPIPRAZOLE [Interacting]
     Active Substance: ARIPIPRAZOLE
     Indication: Product used for unknown indication
     Route: 030
  3. QUETIAPINE FUMARATE [Interacting]
     Active Substance: QUETIAPINE FUMARATE
     Indication: Insomnia
     Dosage: 1 EVERY 1 DAYS
     Route: 048
  4. ABILIFY MAINTENA [Interacting]
     Active Substance: ARIPIPRAZOLE
     Indication: Product used for unknown indication
     Dosage: DOSAGE FORM: KIT?1 EVERY 1 DAYS
     Route: 030
  5. CYMBALTA [Interacting]
     Active Substance: DULOXETINE HYDROCHLORIDE
     Indication: Product used for unknown indication
  6. ABILIFY [Interacting]
     Active Substance: ARIPIPRAZOLE
     Indication: Insomnia
     Route: 030
  7. RIVOTRIL [Interacting]
     Active Substance: CLONAZEPAM
     Indication: Insomnia
     Dosage: 1 EVERY 1 DAYS
  8. ORYZANOL [Interacting]
     Active Substance: GAMMA ORYZANOL
     Indication: Product used for unknown indication
     Route: 030

REACTIONS (11)
  - Drug interaction [Unknown]
  - Mood altered [Unknown]
  - Product use issue [Unknown]
  - Stubbornness [Unknown]
  - Thinking abnormal [Unknown]
  - Prescribed underdose [Unknown]
  - Abnormal behaviour [Unknown]
  - Intentional product use issue [Unknown]
  - Prescribed overdose [Unknown]
  - Off label use [Unknown]
  - Overdose [Unknown]
